FAERS Safety Report 7359046-6 (Version None)
Quarter: 2011Q1

REPORT INFORMATION
  Report Type: 
  Country: None (occurrence: None)
  Receive Date: 20110317
  Receipt Date: 20110311
  Transmission Date: 20110831
  Serious: Yes (Hospitalization, Other)
  Sender: FDA-Public Use
  Company Number: US-PFIZER INC-2007022826

PATIENT
  Sex: Female

DRUGS (9)
  1. ZOLOFT [Suspect]
     Dosage: UNK
     Dates: start: 19990628, end: 20060119
  2. NEURONTIN [Suspect]
     Indication: CONVULSION
     Dosage: 100MG-400MG BID - 800MG BID
     Dates: start: 19990628, end: 20030401
  3. FLEXERIL [Suspect]
     Dosage: UNK
  4. NEURONTIN [Suspect]
     Dosage: 400 MG, 3X/DAY
     Dates: start: 20030612, end: 20041013
  5. DILANTIN [Concomitant]
     Dosage: 100 MG, 1X/DAY
  6. ACETYLSALICYLIC ACID [Concomitant]
     Dosage: 325 MG, EVERY MORNING
  7. DILANTIN [Concomitant]
     Dosage: UNK
     Dates: start: 19990614, end: 20060309
  8. BENADRYL [Concomitant]
     Dosage: 10 MG, AT BEDTIME
  9. ZOLOFT [Suspect]
     Dosage: 50 MG, 2X/DAY

REACTIONS (10)
  - BLOOD CREATININE INCREASED [None]
  - SUICIDE ATTEMPT [None]
  - HEPATIC FAILURE [None]
  - OLIGURIA [None]
  - CONFUSIONAL STATE [None]
  - COMA [None]
  - MULTIPLE DRUG OVERDOSE [None]
  - HYPOGLYCAEMIA [None]
  - DRUG INEFFECTIVE [None]
  - AMNESIA [None]
